FAERS Safety Report 9964472 (Version 1)
Quarter: 2014Q1

REPORT INFORMATION
  Report Type: Spontaneous
  Country: IT (occurrence: IT)
  Receive Date: 20140305
  Receipt Date: 20140305
  Transmission Date: 20141002
  Serious: Yes (Other)
  Sender: FDA-Public Use
  Company Number: IT-ASTRAZENECA-2014SE13270

PATIENT
  Age: 29652 Day
  Sex: Male

DRUGS (8)
  1. PROPOFOL [Suspect]
     Indication: ANAESTHESIA
     Route: 042
     Dates: start: 20131011, end: 20131011
  2. ULTIVA [Suspect]
     Indication: ANAESTHESIA
     Dosage: 1 MG DRUG IN VIALS, 40 MG DAILY
     Route: 042
     Dates: start: 20131011, end: 20131011
  3. ESMERON [Suspect]
     Indication: ANAESTHESIA
     Dosage: 10 MG/ML SOLUTION FOR INJECTION, 40 MG DAILY
     Route: 042
     Dates: start: 20131011, end: 20131011
  4. LIXIDOL [Suspect]
     Indication: ANALGESIC THERAPY
     Dosage: 30 MG/ML SOLUTION FOR INJECTION, 10 MG DAILY
     Route: 042
     Dates: start: 20131011, end: 20131011
  5. ONDANSETRONE HIKMA [Suspect]
     Indication: NAUSEA
     Dosage: 4MG/2ML SOLUTION FOR INJECTION, 4 MG DAILY
     Route: 042
     Dates: start: 20131011, end: 20131011
  6. ZANTAC [Suspect]
     Indication: PROPHYLAXIS AGAINST GASTROINTESTINAL ULCER
     Dosage: 50MG/5ML SOLUTION FOR INJECTION, 50 MG DAILY
     Route: 042
     Dates: start: 20131011, end: 20131211
  7. ZANTAC [Suspect]
     Indication: PROPHYLAXIS AGAINST GASTROINTESTINAL ULCER
     Route: 042
  8. MEFOXIN [Suspect]
     Indication: PROPHYLAXIS
     Dosage: 1 G/10ML SOLUTION FOR INJECTION, 1 G DAILY
     Route: 042
     Dates: start: 20131011, end: 20131011

REACTIONS (3)
  - Eosinophilia [Recovered/Resolved]
  - Rash pustular [Recovered/Resolved]
  - Transaminases increased [Recovered/Resolved]
